FAERS Safety Report 4403927-X (Version None)
Quarter: 2004Q3

REPORT INFORMATION
  Report Type: 
  Country: None (occurrence: None)
  Receive Date: 20040719
  Receipt Date: 20040702
  Transmission Date: 20050211
  Serious: Yes (Death)
  Sender: FDA-Public Use
  Company Number: 2004-BP-05262NB(0)

PATIENT
  Age: 75 Year
  Sex: Male

DRUGS (10)
  1. MEXITIL [Suspect]
     Indication: ARRHYTHMIA
     Dosage: 200 MG PO
     Route: 048
     Dates: start: 20040426, end: 20040607
  2. ASPIRIN [Suspect]
     Dosage: 100 MG PO
     Route: 048
     Dates: start: 20040101, end: 20040607
  3. DA-KENCHU-TO (HERBAL MEDICINE) (GR) [Suspect]
     Dosage: 7.5 G PO
     Route: 048
     Dates: start: 20040421, end: 20040607
  4. SOLDOLON (VER) [Suspect]
     Dosage: 300 MG PO
     Route: 048
     Dates: start: 20040426, end: 20040607
  5. HALCION [Suspect]
     Dosage: 0.125 MG PO
     Route: 048
     Dates: start: 20040426, end: 20040607
  6. SENNOSIDE (LOP) [Suspect]
     Dosage: 24 MG PO
     Route: 048
     Dates: start: 20040426, end: 20040607
  7. ALDACTONE [Suspect]
     Dosage: 25 MG PO
     Route: 048
     Dates: start: 20040426, end: 20040607
  8. CATACLOT (OZAGREL SODIUM) (AMV) [Suspect]
     Dosage: 160 IV
     Route: 042
     Dates: start: 20040526, end: 20040606
  9. UNKNOWN DRUG (TA) [Concomitant]
  10. MERISLON (BETAHISTINE HYDROCHLORIDE) (TA) [Concomitant]

REACTIONS (1)
  - HEPATITIS FULMINANT [None]
